FAERS Safety Report 25784535 (Version 1)
Quarter: 2025Q3

REPORT INFORMATION
  Report Type: Spontaneous
  Country: KR (occurrence: KR)
  Receive Date: 20250910
  Receipt Date: 20250910
  Transmission Date: 20251021
  Serious: Yes (Other)
  Sender: Kenvue
  Company Number: KR-KENVUE-20250902347

PATIENT

DRUGS (3)
  1. TYLENOL 8HR [Suspect]
     Active Substance: ACETAMINOPHEN
     Indication: Product used for unknown indication
     Dosage: 650 MILLIGRAM, THRICE A DAY, 650MG / 8HOUR
     Route: 065
     Dates: start: 20220824, end: 20220824
  2. CEFACLOR [Suspect]
     Active Substance: CEFACLOR
     Indication: Breast cancer
     Dosage: 250 MILLIGRAM, THRICE A DAY (250MG / 8HOUR)
     Route: 065
     Dates: start: 20220824, end: 20220824
  3. IODIXANOL [Concomitant]
     Active Substance: IODIXANOL
     Indication: Breast cancer
     Route: 065
     Dates: start: 20220824, end: 20220824

REACTIONS (3)
  - Seizure [Recovered/Resolved]
  - Pruritus [Recovered/Resolved]
  - Rash [Recovered/Resolved]

NARRATIVE: CASE EVENT DATE: 20220824
